FAERS Safety Report 6827044-4 (Version None)
Quarter: 2010Q3

REPORT INFORMATION
  Report Type: 
  Country: None (occurrence: None)
  Receive Date: 20100709
  Receipt Date: 20100625
  Transmission Date: 20110219
  Serious: Yes (Hospitalization)
  Sender: FDA-Public Use
  Company Number: GB-MERCK-1007USA00485

PATIENT
  Age: 77 Year
  Sex: Female

DRUGS (6)
  1. DECADRON [Suspect]
     Indication: METASTASIS
     Route: 048
  2. MST UNICONTINUS [Suspect]
     Indication: PAIN
     Route: 065
  3. LANSOPRAZOLE [Concomitant]
     Route: 048
  4. SERETIDE [Concomitant]
     Route: 065
  5. SPIRIVA [Concomitant]
     Route: 065
  6. METOCLOPRAMIDE [Concomitant]
     Route: 065

REACTIONS (2)
  - HALLUCINATIONS, MIXED [None]
  - NARCOTIC INTOXICATION [None]
